FAERS Safety Report 20687169 (Version 1)
Quarter: 2022Q2

REPORT INFORMATION
  Report Type: Report from Study
  Country: US (occurrence: US)
  Receive Date: 20220407
  Receipt Date: 20220407
  Transmission Date: 20220721
  Serious: Yes (Hospitalization)
  Sender: FDA-Public Use
  Company Number: US-BAXTER-2022BAX007474

PATIENT
  Age: 61 Year
  Sex: Female

DRUGS (14)
  1. CYCLOPHOSPHAMIDE [Suspect]
     Active Substance: CYCLOPHOSPHAMIDE
     Indication: Product used for unknown indication
     Dosage: 150MG/M2 IV OVER 3 HOURS TWICE A DAY ON DAYS 1-3, INTRAVENOUS
     Route: 042
  2. MESNEX [Suspect]
     Active Substance: MESNA
     Indication: Product used for unknown indication
     Dosage: 300MG/M2 IV DAILY OVER 24 HOURS FOR 3 DAYS ON DAYS 1-3, INTRAVENOUS
     Route: 042
  3. INOTUZUMAB OZOGAMICIN [Suspect]
     Active Substance: INOTUZUMAB OZOGAMICIN
     Indication: Acute lymphocytic leukaemia
     Dosage: 0.3 MG/M2 CYCLIC (REGIMEN A: IV OVER 1 HOUR ON DAYS 2 AND 8 OF CYCLES 1 AND 3 (APPROXIMATE)
     Route: 042
     Dates: start: 20211117
  4. INOTUZUMAB OZOGAMICIN [Suspect]
     Active Substance: INOTUZUMAB OZOGAMICIN
     Dosage: SECOND REGIMEN AT 0.3 MG/M2 CYCLIC (REGIMEN B: IV ON DAYS 2 AND 8 OF CYCLES 2 AND 4 (APPROXIMATE))
     Route: 042
  5. CYTARABINE [Suspect]
     Active Substance: CYTARABINE
     Indication: Product used for unknown indication
     Dosage: 0.5 G/M2 IV OVER 3 HOURS TWICE A DAY X 4 DOSES ON DAYS 2 AND 3., INTRAVENOUS
     Route: 042
  6. METHOTREXATE SODIUM [Suspect]
     Active Substance: METHOTREXATE SODIUM
     Indication: Product used for unknown indication
     Dosage: 50 MG/M2 CYCLIC (REGIMEN B: 50 MG/M2 IV OVER 2HRS ON DAY 1 THEN)
     Route: 042
  7. METHOTREXATE SODIUM [Suspect]
     Active Substance: METHOTREXATE SODIUM
     Dosage: SECOND REGIMEN (ONGOING) AT 200 MG/M2 CYCLIC CONTINUOUS INFUSION OVER 22 HOURS ON DAY 1)
     Route: 042
  8. VINCRISTINE SULFATE [Suspect]
     Active Substance: VINCRISTINE SULFATE
     Indication: Product used for unknown indication
     Dosage: 2MG IV DAY 1 AND DAY 8 (APPROXIMATE), INTRAVENOUS
     Route: 042
  9. RITUXIMAB [Suspect]
     Active Substance: RITUXIMAB
     Indication: Product used for unknown indication
     Dosage: 375MG/M2 IV ON DAY 2 AND DAY 8 OF CYCLES 1 AND 3, INTRAVENOUS
     Route: 042
  10. PEGFILGRASTIM [Suspect]
     Active Substance: PEGFILGRASTIM
     Indication: Product used for unknown indication
     Dosage: 6 MG CYCLIC OR FILGRASTIM 5-10 MCG/KG DAILY ON DAY 4 UNTIL RECOVERY OF GRANULOCYTE COUNT)
     Route: 058
  11. PEGFILGRASTIM [Suspect]
     Active Substance: PEGFILGRASTIM
     Dosage: 6 MG CYCLIC OR FILGRASTIM 5-10 MCG/KG DAILY ON DAY 4 UNTIL RECOVERY OF GRANULOCYTE COUNT
     Route: 058
  12. DEXAMETHASONE [Suspect]
     Active Substance: DEXAMETHASONE
     Indication: Product used for unknown indication
     Dosage: 20 MG CYCLIC (REGIMEN A: 20MG IV DAILY FOR 4 DAYS ON DAYS 1-4 AND DAYS 11-14 (APPROXIMATE)
     Route: 042
  13. BLINATUMOMAB [Suspect]
     Active Substance: BLINATUMOMAB
     Indication: Product used for unknown indication
     Dosage: AT CYCLIC (REGIMEN C: 9UG/DAY CONTINUOUS INFUSION DAYS 1-4 (CYCLE 5 ONLY)
     Route: 065
  14. BLINATUMOMAB [Suspect]
     Active Substance: BLINATUMOMAB
     Dosage: AT CYCLIC (REGIMEN C: 28UG/DAY CONTINUOUS INFUSION DAYS 4-29 (CYCLE 5 ONLY)
     Route: 065

REACTIONS (1)
  - Syncope [Recovered/Resolved]

NARRATIVE: CASE EVENT DATE: 20220224
